FAERS Safety Report 11174847 (Version 1)
Quarter: 2015Q2

REPORT INFORMATION
  Report Type: Spontaneous
  Country: US (occurrence: None)
  Receive Date: 20150608
  Receipt Date: 20150608
  Transmission Date: 20150821
  Serious: No
  Sender: FDA-Public Use
  Company Number: None

PATIENT
  Age: 64 Year
  Sex: Female

DRUGS (6)
  1. IBUPROFEN. [Concomitant]
     Active Substance: IBUPROFEN
  2. LIDOCAINE 1% [Suspect]
     Active Substance: LIDOCAINE
  3. IRBESARTAN. [Concomitant]
     Active Substance: IRBESARTAN
  4. MARCAINE [Suspect]
     Active Substance: BUPIVACAINE HYDROCHLORIDE
  5. SYMBICORT [Concomitant]
     Active Substance: BUDESONIDE\FORMOTEROL FUMARATE DIHYDRATE
  6. METHYLPREDNISOLONE SODIUM SUCCINATE. [Suspect]
     Active Substance: METHYLPREDNISOLONE SODIUM SUCCINATE
     Indication: OSTEOARTHRITIS
     Dates: start: 20150528

REACTIONS (5)
  - Blood culture positive [None]
  - Staphylococcus test positive [None]
  - Arthralgia [None]
  - Gait disturbance [None]
  - Gram stain positive [None]

NARRATIVE: CASE EVENT DATE: 20150527
